FAERS Safety Report 9749137 (Version 1)
Quarter: 2013Q4

REPORT INFORMATION
  Report Type: Spontaneous
  Country: US (occurrence: None)
  Receive Date: 20131211
  Receipt Date: 20131211
  Transmission Date: 20140711
  Serious: Yes (Hospitalization)
  Sender: FDA-Public Use
  Company Number: None

PATIENT
  Age: 91 Year
  Sex: Female
  Weight: 41.9 kg

DRUGS (2)
  1. ELIQUIS [Suspect]
     Indication: ATRIAL FIBRILLATION
     Route: 048
     Dates: start: 20131105, end: 20131122
  2. ELIQUIS [Suspect]
     Indication: EMBOLIC STROKE
     Route: 048
     Dates: start: 20131105, end: 20131122

REACTIONS (2)
  - Urinary tract infection [None]
  - Renal failure acute [None]
